FAERS Safety Report 9614416 (Version 2)
Quarter: 2013Q4

REPORT INFORMATION
  Report Type: Report from Study
  Country: JP (occurrence: JP)
  Receive Date: 20131011
  Receipt Date: 20131011
  Transmission Date: 20140711
  Serious: Yes (Other)
  Sender: FDA-Public Use
  Company Number: JP-009507513-1305JPN007518

PATIENT
  Age: 43 Year
  Sex: Female
  Weight: 50 kg

DRUGS (10)
  1. REBETOL CAPSULES 200MG [Suspect]
     Indication: CHRONIC HEPATITIS C
     Dosage: 400 MG MONRNING, 200 MG EVENING
     Route: 048
     Dates: start: 20100702, end: 20110521
  2. PEGINTRON POWDER FOR INJECTION 100MICROG [Suspect]
     Indication: CHRONIC HEPATITIS C
     Dosage: 100 MICROGRAM, QW
     Route: 058
     Dates: start: 20100702, end: 20110224
  3. PEGINTRON POWDER FOR INJECTION 100MICROG [Suspect]
     Dosage: 6 MILLION-BILLION UNIT, Q3W
     Route: 042
     Dates: start: 20110228, end: 20110521
  4. MYSLEE [Concomitant]
     Indication: INSOMNIA
     Dosage: 10 MG, QD
     Route: 048
     Dates: start: 20100805, end: 20110616
  5. LENDORMIN [Concomitant]
     Indication: INSOMNIA
     Dosage: 0.25 MG, QD
     Route: 048
     Dates: start: 20100805, end: 20111214
  6. VITANEURIN (FURSULTIAMINE (+) HYDROXOCOBALAMIN ACETATE (+) PYRIDOXAL P [Concomitant]
     Indication: ECZEMA
     Dosage: 25 MG, QD
     Route: 048
     Dates: start: 20110106, end: 20110728
  7. BIOTIN [Concomitant]
     Indication: ECZEMA
     Dosage: 2 G FORMULATION: POW
     Route: 048
     Dates: start: 20110106, end: 20110728
  8. BEPOTASTINE BESYLATE [Concomitant]
     Indication: DERMATITIS ALLERGIC
     Dosage: 10 MG, QD
     Route: 048
     Dates: start: 20110224, end: 20110728
  9. MEPTIN AIR [Concomitant]
     Indication: ASTHMA PROPHYLAXIS
     Route: 055
  10. EURAX [Concomitant]
     Indication: DERMATITIS ALLERGIC
     Dosage: UNK
     Dates: start: 20110127

REACTIONS (6)
  - Decreased appetite [Unknown]
  - Pyrexia [Recovered/Resolved]
  - Depression [Recovering/Resolving]
  - Irritability [Recovering/Resolving]
  - Eczema [Recovered/Resolved]
  - Hypoproteinaemia [Recovered/Resolved]
